FAERS Safety Report 17366300 (Version 2)
Quarter: 2020Q1

REPORT INFORMATION
  Report Type: Spontaneous
  Country: US (occurrence: US)
  Receive Date: 20200117
  Receipt Date: 20200117
  Transmission Date: 20200409
  Serious: No
  Sender: FDA-Public Use
  Company Number: None

PATIENT

DRUGS (2)
  1. SODIUM ACETATE. [Suspect]
     Active Substance: SODIUM ACETATE
     Dosage: ?          OTHER DOSE:VIAL;?
  2. STERILE WATER FOR INJECTION [Suspect]
     Active Substance: WATER
     Dosage: ?          OTHER DOSE:VIAL;?

REACTIONS (2)
  - Wrong product stored [None]
  - Product packaging confusion [None]
